FAERS Safety Report 20485602 (Version 5)
Quarter: 2022Q3

REPORT INFORMATION
  Report Type: Spontaneous
  Country: US (occurrence: US)
  Receive Date: 20220217
  Receipt Date: 20220831
  Transmission Date: 20221027
  Serious: No
  Sender: FDA-Public Use
  Company Number: US-BIOGEN-2022BI01096756

PATIENT
  Age: 50 Year
  Sex: Male

DRUGS (1)
  1. TECFIDERA [Suspect]
     Active Substance: DIMETHYL FUMARATE
     Indication: Product used for unknown indication
     Route: 050
     Dates: start: 202108

REACTIONS (4)
  - Hypertension [Unknown]
  - Meniscus injury [Unknown]
  - Procedural pain [Unknown]
  - Flushing [Unknown]

NARRATIVE: CASE EVENT DATE: 20220210
